FAERS Safety Report 6214842-3 (Version None)
Quarter: 2009Q2

REPORT INFORMATION
  Report Type: 
  Country: None (occurrence: None)
  Receive Date: 20090601
  Receipt Date: 20080811
  Transmission Date: 20091009
  Serious: Yes (Other)
  Sender: FDA-Public Use
  Company Number: 266461

PATIENT
  Age: 53 Year
  Sex: Female
  Weight: 63 kg

DRUGS (28)
  1. ACTIVELLA [Suspect]
     Indication: MENOPAUSAL SYMPTOMS
     Dosage: ORAL
     Route: 048
     Dates: start: 20020817, end: 20021021
  2. PREMPRO [Suspect]
     Indication: MENOPAUSAL SYMPTOMS
     Dosage: 0.625/5 MG, ORAL
     Route: 048
     Dates: start: 20000412, end: 20020809
  3. FEMHRT [Suspect]
     Indication: MENOPAUSAL SYMPTOMS
     Dosage: 1 MG/ 5MCG, ORAL
     Route: 048
     Dates: start: 20021125, end: 20040503
  4. ESTRACE [Suspect]
     Indication: MENOPAUSAL SYMPTOMS
     Dosage: 0.1 MG, VAGINAL
     Route: 067
     Dates: start: 20011229
  5. PREMARIN [Concomitant]
  6. EFFEXOR  /01233801/ (VENLAFAXINE) [Concomitant]
  7. ACTONEL [Concomitant]
  8. ADVAIR DISKUS 100/50 [Concomitant]
  9. SINGULAIR /01362601/ (MONTELUKAST) [Concomitant]
  10. COZAAR [Concomitant]
  11. LYRICA [Concomitant]
  12. ALDACTONE [Concomitant]
  13. SPIRONOLACTONE [Concomitant]
  14. NEXIUM	/01479302/ (ESOMEPRAZOLE MAGNESIUM) [Concomitant]
  15. NASONEX [Concomitant]
  16. FIORINAL /00090401/ (ACETYLSALICYLIC ACID, BUTALBITAL, CAFFEINE, PHENA [Concomitant]
  17. ACYCLOVIR /00587301/ (ACICLOVIR) [Concomitant]
  18. ALPRAZOLAM [Concomitant]
  19. ZOLOFT	/01011401/ (SERTRALINE) [Concomitant]
  20. ALBUTEROL /00139501/ (SALBUTAMOL) [Concomitant]
  21. BACLOFEN [Concomitant]
  22. FOSAMAX [Concomitant]
  23. IMITREX	/01044801/ (SUMATRIPTAN) [Concomitant]
  24. TRAMADOL HCL [Concomitant]
  25. CYMBALTA [Concomitant]
  26. ZOLPIDEM [Concomitant]
  27. WELLBUTRIN XL [Concomitant]
  28. PHENDIMETRAZINE (PHENDIMETRAZINE) [Concomitant]

REACTIONS (1)
  - BREAST CANCER [None]
